FAERS Safety Report 13608506 (Version 2)
Quarter: 2017Q2

REPORT INFORMATION
  Report Type: Report from Study
  Country: None (occurrence: AU)
  Receive Date: 20170602
  Receipt Date: 20170609
  Transmission Date: 20170830
  Serious: Yes (Hospitalization)
  Sender: FDA-Public Use
  Company Number: AU-ABBVIE-17K-008-1994888-00

PATIENT
  Age: 76 Year
  Sex: Female

DRUGS (1)
  1. DUODOPA [Suspect]
     Active Substance: CARBIDOPA\LEVODOPA
     Indication: PARKINSON^S DISEASE
     Dosage: 16HRLY INFUSION VIA PEG J
     Route: 050
     Dates: start: 20160414

REACTIONS (13)
  - Stress fracture [Unknown]
  - Mobility decreased [Unknown]
  - Urinary tract disorder [Recovering/Resolving]
  - Incorrect route of drug administration [Not Recovered/Not Resolved]
  - Spinal compression fracture [Recovered/Resolved]
  - Fall [Not Recovered/Not Resolved]
  - Groin pain [Unknown]
  - Wound haemorrhage [Unknown]
  - Constipation [Not Recovered/Not Resolved]
  - Device occlusion [Unknown]
  - Laceration [Unknown]
  - Chest pain [Unknown]
  - Contusion [Unknown]

NARRATIVE: CASE EVENT DATE: 2017
